FAERS Safety Report 8510419-5 (Version None)
Quarter: 2012Q3

REPORT INFORMATION
  Report Type: 
  Country: None (occurrence: None)
  Receive Date: 20120714
  Receipt Date: 20120710
  Transmission Date: 20120928
  Serious: Yes (Other)
  Sender: FDA-Public Use
  Company Number: PHHY2012SA059146

PATIENT
  Age: 33 Year
  Sex: Female

DRUGS (1)
  1. LEVETIRACETAM [Suspect]
     Indication: GRAND MAL CONVULSION
     Dosage: 500 MG, UNK

REACTIONS (5)
  - LIP SWELLING [None]
  - ANGIOEDEMA [None]
  - SWELLING FACE [None]
  - RASH MACULO-PAPULAR [None]
  - SWOLLEN TONGUE [None]
